FAERS Safety Report 11886363 (Version 21)
Quarter: 2018Q2

REPORT INFORMATION
  Report Type: Spontaneous
  Country: US (occurrence: US)
  Receive Date: 20160104
  Receipt Date: 20180620
  Transmission Date: 20180711
  Serious: Yes (Hospitalization)
  Sender: FDA-Public Use
  Company Number: US-ACTELION PHARMACEUTICALS US, INC.-A-US2015-122875

PATIENT
  Age: 49 Year
  Sex: Female
  Weight: 151.2 kg

DRUGS (23)
  1. VELETRI [Suspect]
     Active Substance: EPOPROSTENOL
     Dosage: 49 NG/KG, PER MIN
     Route: 042
  2. TRACLEER [Suspect]
     Active Substance: BOSENTAN
     Indication: PULMONARY ARTERIAL HYPERTENSION
     Dosage: 125 MG, BID
     Route: 048
     Dates: start: 20141202
  3. SPIRONOLACTONE. [Concomitant]
     Active Substance: SPIRONOLACTONE
  4. OXYGEN. [Concomitant]
     Active Substance: OXYGEN
     Dosage: 4 L, PER MIN AT REST; 6L /MIN WITH EXERTION
  5. FLONASE [Concomitant]
     Active Substance: FLUTICASONE PROPIONATE
  6. GABAPENTIN. [Concomitant]
     Active Substance: GABAPENTIN
  7. VELETRI [Suspect]
     Active Substance: EPOPROSTENOL
     Dosage: 64 NG/KG, PER MIN
     Route: 042
  8. VELETRI [Suspect]
     Active Substance: EPOPROSTENOL
     Dosage: UNK
     Route: 042
  9. METOLAZONE. [Concomitant]
     Active Substance: METOLAZONE
  10. OXYGEN. [Concomitant]
     Active Substance: OXYGEN
     Dosage: UNK
  11. DOXEPIN [Concomitant]
     Active Substance: DOXEPIN
  12. OMEPRAZOLE. [Concomitant]
     Active Substance: OMEPRAZOLE
  13. VELETRI [Suspect]
     Active Substance: EPOPROSTENOL
     Indication: PULMONARY ARTERIAL HYPERTENSION
     Dosage: 74 NG/KG, PER MIN
     Route: 042
     Dates: start: 20131022
  14. SILDENAFIL. [Concomitant]
     Active Substance: SILDENAFIL
     Indication: PULMONARY ARTERIAL HYPERTENSION
     Dosage: 40, 20,.20
  15. HUMULIN NOS [Concomitant]
     Active Substance: INSULIN HUMAN
  16. COUMADIN [Concomitant]
     Active Substance: WARFARIN SODIUM
  17. POTASSIUM [Concomitant]
     Active Substance: POTASSIUM
  18. FLEXERIL [Concomitant]
     Active Substance: CYCLOBENZAPRINE HYDROCHLORIDE
  19. LASIX [Concomitant]
     Active Substance: FUROSEMIDE
  20. LOMOTIL [Concomitant]
     Active Substance: ATROPINE SULFATE\DIPHENOXYLATE HYDROCHLORIDE
  21. LANTUS [Concomitant]
     Active Substance: INSULIN GLARGINE
  22. ALENDRONAT [Concomitant]
     Active Substance: ALENDRONATE SODIUM
  23. TORSEMIDE. [Concomitant]
     Active Substance: TORSEMIDE

REACTIONS (47)
  - Catheter site discharge [Unknown]
  - Weight decreased [Unknown]
  - Diarrhoea [Recovered/Resolved]
  - Palpitations [Unknown]
  - Hyperhidrosis [Unknown]
  - Anxiety [Unknown]
  - Device alarm issue [Unknown]
  - Middle ear effusion [Unknown]
  - Cough [Unknown]
  - Platelet count decreased [Recovering/Resolving]
  - Malaise [Unknown]
  - Pain in extremity [Recovering/Resolving]
  - Chest pain [Recovering/Resolving]
  - Eustachian tube disorder [Unknown]
  - Pallor [Unknown]
  - Musculoskeletal pain [Recovering/Resolving]
  - Drug administration error [Unknown]
  - Nasopharyngitis [Unknown]
  - Ageusia [Unknown]
  - Dizziness [Unknown]
  - Abdominal pain [Unknown]
  - Asthenia [Unknown]
  - Therapy non-responder [Unknown]
  - Ear tube insertion [Unknown]
  - Vertigo [Unknown]
  - Vomiting [Unknown]
  - Device leakage [Recovered/Resolved]
  - Catheter site pain [Unknown]
  - Heart rate increased [Unknown]
  - Sinusitis [Unknown]
  - Flushing [Unknown]
  - Device malfunction [Unknown]
  - Incorrect dose administered by device [Unknown]
  - Inner ear disorder [Unknown]
  - Dyspnoea [Unknown]
  - Pain in jaw [Recovered/Resolved]
  - Rash [Recovered/Resolved]
  - Feeling abnormal [Unknown]
  - Underdose [Recovered/Resolved]
  - Pyrexia [Unknown]
  - Device dislocation [Unknown]
  - Pneumonia aspiration [Unknown]
  - Device breakage [Recovered/Resolved]
  - Device related infection [Unknown]
  - Fatigue [Unknown]
  - Headache [Unknown]
  - Blood pressure decreased [Unknown]

NARRATIVE: CASE EVENT DATE: 201703
